FAERS Safety Report 20524719 (Version 1)
Quarter: 2022Q1

REPORT INFORMATION
  Report Type: Spontaneous
  Country: US (occurrence: US)
  Receive Date: 20220228
  Receipt Date: 20220228
  Transmission Date: 20220423
  Serious: Yes (Hospitalization, Other)
  Sender: FDA-Public Use
  Company Number: US-APOTEX-2022AP003786

PATIENT
  Age: 76 Year
  Sex: Male

DRUGS (1)
  1. ACETAMINOPHEN [Suspect]
     Active Substance: ACETAMINOPHEN
     Indication: Product used for unknown indication
     Dosage: 200 DOSAGE FORM
     Route: 048

REACTIONS (10)
  - Toxicity to various agents [Unknown]
  - Overdose [Unknown]
  - Metabolic acidosis [Recovered/Resolved]
  - Hypotension [Unknown]
  - Unresponsive to stimuli [Unknown]
  - Tachypnoea [Unknown]
  - Encephalopathy [Recovered/Resolved]
  - Analgesic drug level increased [Unknown]
  - Aspartate aminotransferase increased [Unknown]
  - Alanine aminotransferase increased [Unknown]
